FAERS Safety Report 13961424 (Version 1)
Quarter: 2017Q3

REPORT INFORMATION
  Report Type: Spontaneous
  Country: DK (occurrence: DK)
  Receive Date: 20170912
  Receipt Date: 20170912
  Transmission Date: 20171128
  Serious: Yes (Other)
  Sender: FDA-Public Use
  Company Number: DK-JNJFOC-20170906113

PATIENT

DRUGS (5)
  1. PIPAMPERONE [Suspect]
     Active Substance: PIPAMPERONE
     Indication: SCHIZOPHRENIA
     Route: 065
  2. RISPERIDONE. [Suspect]
     Active Substance: RISPERIDONE
     Indication: SCHIZOPHRENIA
     Route: 065
  3. PIMOZIDE. [Suspect]
     Active Substance: PIMOZIDE
     Indication: SCHIZOPHRENIA
     Route: 065
  4. HALOPERIDOL. [Suspect]
     Active Substance: HALOPERIDOL
     Indication: SCHIZOPHRENIA
     Route: 065
  5. PALIPERIDONE. [Suspect]
     Active Substance: PALIPERIDONE
     Indication: SCHIZOPHRENIA
     Route: 065

REACTIONS (3)
  - Type 1 diabetes mellitus [Unknown]
  - Type 2 diabetes mellitus [Unknown]
  - Diabetic ketoacidosis [Unknown]
